FAERS Safety Report 6847890-0 (Version None)
Quarter: 2010Q3

REPORT INFORMATION
  Report Type: 
  Country: None (occurrence: None)
  Receive Date: 20100716
  Receipt Date: 20100712
  Transmission Date: 20110219
  Serious: Yes (Life-Threatening, Hospitalization)
  Sender: FDA-Public Use
  Company Number: GB-ELI_LILLY_AND_COMPANY-GB201007002815

PATIENT
  Age: 64 Year
  Sex: Male

DRUGS (10)
  1. GEMCITABINE HYDROCHLORIDE [Suspect]
     Indication: BLADDER CANCER
     Dosage: UNK, UNKNOWN
     Route: 065
     Dates: start: 20100415
  2. SUNITINIB MALATE [Suspect]
     Indication: BLADDER CANCER
     Dosage: UNK, UNKNOWN
     Route: 065
     Dates: start: 20100415
  3. CISPLATIN [Suspect]
     Indication: BLADDER CANCER
     Dosage: UNK, UNKNOWN
     Route: 065
     Dates: start: 20100415
  4. ENALAPRIL MALEATE [Concomitant]
     Dosage: 20 MG, UNK
     Route: 048
  5. AMLODIPINE BESYLATE [Concomitant]
     Dosage: 20 MG, UNK
     Route: 048
  6. AMILORIDE HYDROCHLORIDE [Concomitant]
     Dosage: 5 MG, UNK
     Route: 048
  7. METFORMIN HYDROCHLORIDE [Concomitant]
     Dosage: 1 G, UNK
     Route: 048
  8. GLIMEPIRIDE [Concomitant]
     Dosage: 6 MG, UNK
     Route: 048
  9. PIOGLITAZONE [Concomitant]
     Dosage: 30 MG, UNK
     Route: 048
  10. SIMVASTATIN [Concomitant]
     Dosage: 40 MG, UNK
     Route: 048

REACTIONS (4)
  - HAEMOGLOBIN DECREASED [None]
  - NEUTROPENIC SEPSIS [None]
  - PLATELET COUNT DECREASED [None]
  - SWELLING FACE [None]
